FAERS Safety Report 7954164-3 (Version None)
Quarter: 2011Q4

REPORT INFORMATION
  Report Type: 
  Country: None (occurrence: None)
  Receive Date: 20111202
  Receipt Date: 20111130
  Transmission Date: 20120403
  Serious: Yes (Death, Life-Threatening, Hospitalization)
  Sender: FDA-Public Use
  Company Number: JP-PFIZER INC-2011260206

PATIENT
  Age: 77 Year
  Sex: Male
  Weight: 47 kg

DRUGS (6)
  1. ESTAZOLAM [Concomitant]
     Dosage: UNK
     Dates: start: 20070412
  2. OPALMON [Concomitant]
     Dosage: UNK
     Dates: start: 20071227
  3. ALMARL [Concomitant]
     Dosage: UNK
     Dates: start: 20070604
  4. CABERGOLINE [Suspect]
     Indication: PARKINSON'S DISEASE
     Dosage: 2MG/DAY
     Dates: start: 20050101, end: 20101111
  5. MENEST [Concomitant]
     Dosage: UNK
     Dates: start: 20070215
  6. ETODOLAC [Concomitant]
     Dosage: UNK
     Dates: start: 20071227

REACTIONS (2)
  - PULMONARY FIBROSIS [None]
  - PLEURAL FIBROSIS [None]
